FAERS Safety Report 10029888 (Version 1)
Quarter: 2014Q1

REPORT INFORMATION
  Report Type: Spontaneous
  Country: US (occurrence: None)
  Receive Date: 20140306
  Receipt Date: 20140306
  Transmission Date: 20141002
  Serious: Yes (Hospitalization)
  Sender: FDA-Public Use
  Company Number: 163-21880-12122440

PATIENT
  Age: 75 Year
  Sex: Male

DRUGS (11)
  1. REVLIMID (LENALIDOMIDE) (10 MILLIGRAM, CAPSULES) [Suspect]
     Indication: MYELODYSPLASTIC SYNDROME
     Dosage: 10 MG, 21 IN 28 D, PO
     Route: 048
     Dates: start: 20120910, end: 201212
  2. AMLODIPINE BESYLATE (AMLODIPINE BESILATE) [Concomitant]
  3. ASPIRIN LOW DOSE (ACETYLSALICYLIC ACID) [Concomitant]
  4. CRESTOR (ROSUVASTATIN) [Concomitant]
  5. HYDROCHLOROTHIAZIDE (HYDROCHLOROTHIAZIDE) [Concomitant]
  6. TRANSFUSION (BLOOD AND RELATED PRODUCTS) [Concomitant]
  7. NORVASC (AMLODIPINE BESILATE) [Concomitant]
  8. HCTZ (HYDROCHLOROTHIAZIDE) [Concomitant]
  9. ZOLOFT (SERTRALINE HYDROCHLORIDE) [Concomitant]
  10. PLATELETS (PLATELETS) [Concomitant]
  11. PRBCS (BLOOD AND RELATED PRODUCTS) [Concomitant]

REACTIONS (4)
  - Oedema peripheral [None]
  - Thrombocytopenia [None]
  - Anaemia [None]
  - Epistaxis [None]
